FAERS Safety Report 6121161-2 (Version None)
Quarter: 2009Q1

REPORT INFORMATION
  Report Type: 
  Country: None (occurrence: None)
  Receive Date: 20090317
  Receipt Date: 20090311
  Transmission Date: 20090719
  Serious: Yes (Hospitalization)
  Sender: FDA-Public Use
  Company Number: B0563146A

PATIENT
  Age: 75 Year
  Sex: Female

DRUGS (16)
  1. AUGMENTIN '125' [Suspect]
     Indication: LUNG INFECTION
     Dosage: 1G TWICE PER DAY
     Route: 042
     Dates: start: 20080630, end: 20080630
  2. VISIPAQUE [Suspect]
     Indication: DRUG USE FOR UNKNOWN INDICATION
     Dosage: 150MG PER DAY
     Route: 042
     Dates: start: 20080630, end: 20080630
  3. BRICANYL [Suspect]
     Indication: LUNG INFECTION
     Dosage: 1UNIT THREE TIMES PER DAY
     Route: 055
     Dates: start: 20080629, end: 20080630
  4. FLUIMUCIL [Suspect]
     Indication: LUNG INFECTION
     Route: 048
     Dates: start: 20080629, end: 20080630
  5. OROKEN [Suspect]
     Indication: DRUG USE FOR UNKNOWN INDICATION
     Dosage: 400MG PER DAY
     Route: 048
     Dates: start: 20080621, end: 20080624
  6. PRIMPERAN [Suspect]
     Indication: NAUSEA
     Dosage: 1UNIT THREE TIMES PER DAY
     Route: 042
     Dates: start: 20080627, end: 20080704
  7. PERFALGAN [Suspect]
     Indication: PAIN
     Dosage: 1G FOUR TIMES PER DAY
     Route: 058
     Dates: start: 20080620, end: 20080704
  8. LOVENOX [Suspect]
     Indication: PROPHYLAXIS
     Dosage: 4000IU PER DAY
     Route: 058
     Dates: start: 20080622, end: 20080708
  9. STILNOX [Suspect]
     Indication: INSOMNIA
     Dosage: 1UNIT PER DAY
     Route: 048
     Dates: start: 20080623, end: 20080704
  10. TRIFLUCAN [Suspect]
     Indication: DRUG USE FOR UNKNOWN INDICATION
     Dosage: 100MG PER DAY
     Route: 048
     Dates: start: 20080624, end: 20080704
  11. XANAX [Suspect]
     Indication: ANXIETY
     Dosage: .75MG PER DAY
     Route: 048
     Dates: end: 20080701
  12. DEROXAT [Concomitant]
     Indication: DRUG USE FOR UNKNOWN INDICATION
     Route: 065
  13. LEXOMIL [Concomitant]
     Indication: DRUG USE FOR UNKNOWN INDICATION
     Route: 065
     Dates: start: 20080621
  14. TAREG [Concomitant]
     Indication: DRUG USE FOR UNKNOWN INDICATION
     Route: 065
  15. CARBOPLATIN [Concomitant]
     Route: 065
  16. NICARDIPINE HCL [Concomitant]
     Route: 065

REACTIONS (3)
  - CHOLESTASIS [None]
  - RASH MACULO-PAPULAR [None]
  - TOXIC SKIN ERUPTION [None]
